FAERS Safety Report 13651737 (Version 1)
Quarter: 2017Q2

REPORT INFORMATION
  Report Type: Spontaneous
  Country: US (occurrence: US)
  Receive Date: 20170614
  Receipt Date: 20170614
  Transmission Date: 20170830
  Serious: No
  Sender: FDA-Public Use
  Company Number: US-BAYER-2017-109768

PATIENT
  Sex: Male
  Weight: 98 kg

DRUGS (8)
  1. TOLPERISONE [Concomitant]
     Active Substance: TOLPERISONE
  2. FUROSEMIDE. [Concomitant]
     Active Substance: FUROSEMIDE
  3. POTASSIUM [Concomitant]
     Active Substance: POTASSIUM
  4. MIRALAX [Suspect]
     Active Substance: POLYETHYLENE GLYCOL 3350
     Indication: CONSTIPATION
     Dosage: 1 DF
     Route: 048
  5. DILTIAZEM. [Concomitant]
     Active Substance: DILTIAZEM
  6. QUINAPRIL. [Concomitant]
     Active Substance: QUINAPRIL
  7. ASPIRIN. [Concomitant]
     Active Substance: ASPIRIN
  8. TRAMADOL. [Concomitant]
     Active Substance: TRAMADOL

REACTIONS (3)
  - Inappropriate prescribing [Unknown]
  - Incorrect drug administration duration [Unknown]
  - Abdominal discomfort [Recovered/Resolved]
